FAERS Safety Report 11329739 (Version 2)
Quarter: 2015Q3

REPORT INFORMATION
  Report Type: Spontaneous
  Country: US (occurrence: None)
  Receive Date: 20150730
  Receipt Date: 20150828
  Transmission Date: 20151125
  Serious: Yes (Disabling, Other)
  Sender: FDA-Public Use
  Company Number: DEP_03247_2015

PATIENT
  Age: 80 Year
  Sex: Female

DRUGS (1)
  1. GABAPENTIN. [Suspect]
     Active Substance: GABAPENTIN
     Indication: POST HERPETIC NEURALGIA

REACTIONS (6)
  - Pneumonia [None]
  - Renal impairment [None]
  - Tremor [None]
  - Myoclonus [None]
  - Asterixis [None]
  - Neurotoxicity [None]
